FAERS Safety Report 15535348 (Version 1)
Quarter: 2018Q4

REPORT INFORMATION
  Report Type: Spontaneous
  Country: FR (occurrence: FR)
  Receive Date: 20181022
  Receipt Date: 20181022
  Transmission Date: 20190205
  Serious: Yes (Disabling)
  Sender: FDA-Public Use
  Company Number: FR-SUN PHARMACEUTICAL INDUSTRIES LTD-2018RR-188206

PATIENT
  Age: 60 Year
  Sex: Male

DRUGS (9)
  1. CEFTRIAXONE. [Suspect]
     Active Substance: CEFTRIAXONE
     Indication: LUNG DISORDER
     Dosage: 1 G, DAILY
     Route: 042
     Dates: start: 20180719, end: 20180802
  2. FENOFIBRATE. [Suspect]
     Active Substance: FENOFIBRATE
     Indication: PRODUCT USED FOR UNKNOWN INDICATION
     Dosage: 160 MG, DAILY
     Route: 048
  3. ADENURIC [Concomitant]
     Active Substance: FEBUXOSTAT
     Indication: PRODUCT USED FOR UNKNOWN INDICATION
     Dosage: ()
     Route: 065
  4. KEPPRA [Concomitant]
     Active Substance: LEVETIRACETAM
     Indication: PRODUCT USED FOR UNKNOWN INDICATION
     Dosage: ()
     Route: 065
  5. SOLUPRED [PREDNISOLONE METASULFOBENZOATE SODIUM] [Suspect]
     Active Substance: PREDNISOLONE SODIUM METAZOATE
     Indication: LUNG DISORDER
     Dosage: 3 DF, DAILY
     Route: 048
  6. ENALAPRIL (MALEATE D^) [Concomitant]
     Active Substance: ENALAPRIL MALEATE
     Indication: PRODUCT USED FOR UNKNOWN INDICATION
     Dosage: ()
     Route: 065
  7. SYMBICORT [Concomitant]
     Active Substance: BUDESONIDE\FORMOTEROL FUMARATE DIHYDRATE
     Indication: PRODUCT USED FOR UNKNOWN INDICATION
     Dosage: ()
     Route: 065
  8. LEVOFLOXACIN. [Suspect]
     Active Substance: LEVOFLOXACIN
     Indication: LUNG DISORDER
     Dosage: 1000 MG, DAILY
     Route: 048
     Dates: start: 20180719, end: 20180802
  9. PANTOPRAZOLE [Concomitant]
     Active Substance: PANTOPRAZOLE
     Indication: PRODUCT USED FOR UNKNOWN INDICATION
     Dosage: ()
     Route: 065

REACTIONS (1)
  - Tendon rupture [Recovering/Resolving]

NARRATIVE: CASE EVENT DATE: 20180727
